FAERS Safety Report 9501210 (Version 1)
Quarter: 2013Q1

REPORT INFORMATION
  Report Type: Spontaneous
  Country: US (occurrence: None)
  Receive Date: 20130107
  Receipt Date: 20130107
  Transmission Date: 20140127
  Serious: No
  Sender: FDA-Public Use
  Company Number: PHEH2012US017390

PATIENT
  Age: 53 Year
  Sex: Male
  Weight: 79.4 kg

DRUGS (3)
  1. GILENYA (FTY) CAPSULE, 0.5MG [Suspect]
     Indication: MULTIPLE SCLEROSIS
     Route: 048
     Dates: start: 20120904
  2. LIPITOR (ATORVASTATIN CALCIUM) [Concomitant]
  3. VITAMIN D (ERGOCALCIFEROL) [Concomitant]

REACTIONS (5)
  - Fatigue [None]
  - Cardiac flutter [None]
  - Nasopharyngitis [None]
  - Upper respiratory tract infection [None]
  - Overdose [None]
